FAERS Safety Report 4664504-9 (Version None)
Quarter: 2005Q2

REPORT INFORMATION
  Report Type: 
  Country: None (occurrence: None)
  Receive Date: 20050518
  Receipt Date: 20050511
  Transmission Date: 20051028
  Serious: Yes (Other)
  Sender: FDA-Public Use
  Company Number: DE-NOVOPROD-244092

PATIENT
  Sex: Male

DRUGS (1)
  1. ACTRAPID HM(GE) PENFILL [Suspect]
     Indication: DIABETES MELLITUS

REACTIONS (2)
  - HYPOGLYCAEMIA [None]
  - RENAL DISORDER [None]
